FAERS Safety Report 21609774 (Version 1)
Quarter: 2022Q4

REPORT INFORMATION
  Report Type: Spontaneous
  Country: CN (occurrence: CN)
  Receive Date: 20221117
  Receipt Date: 20221117
  Transmission Date: 20230113
  Serious: Yes (Other)
  Sender: FDA-Public Use
  Company Number: CN-VIIV HEALTHCARE LIMITED-CN2022APC160306

PATIENT

DRUGS (18)
  1. LAMIVUDINE [Suspect]
     Active Substance: LAMIVUDINE
     Indication: HIV infection
     Dosage: 300 MG, 1D
     Route: 048
     Dates: start: 201607
  2. LAMIVUDINE [Suspect]
     Active Substance: LAMIVUDINE
     Indication: Acquired immunodeficiency syndrome
     Dosage: 300 MG, 1D
     Route: 048
     Dates: start: 20170118, end: 20180218
  3. LAMIVUDINE [Suspect]
     Active Substance: LAMIVUDINE
     Dosage: 300 MG, 1D
     Route: 048
     Dates: start: 20180916
  4. ZIDOVUDINE [Suspect]
     Active Substance: ZIDOVUDINE
     Indication: HIV infection
     Dosage: 300 MG, BID
     Route: 048
     Dates: start: 201607
  5. ZIDOVUDINE [Suspect]
     Active Substance: ZIDOVUDINE
     Indication: Acquired immunodeficiency syndrome
     Dosage: 300 MG, QD
     Route: 048
     Dates: start: 20170118, end: 20180218
  6. ZIDOVUDINE [Suspect]
     Active Substance: ZIDOVUDINE
     Dosage: 300 MG, QD
     Route: 048
     Dates: start: 20180916
  7. EFAVIRENZ [Suspect]
     Active Substance: EFAVIRENZ
     Indication: HIV infection
     Dosage: 600 MG, QD
     Route: 048
     Dates: start: 201607
  8. EFAVIRENZ [Suspect]
     Active Substance: EFAVIRENZ
     Indication: Acquired immunodeficiency syndrome
     Dosage: 600 MG, QD
     Route: 048
     Dates: start: 20170118, end: 20180218
  9. EFAVIRENZ [Suspect]
     Active Substance: EFAVIRENZ
     Dosage: 600 MG, QD
     Route: 048
     Dates: start: 20180916
  10. THROMBOPOIETIN [Concomitant]
     Active Substance: THROMBOPOIETIN
     Indication: Platelet count decreased
     Dosage: 15000 U (INJECTION 1 TIME A DAY)
     Route: 058
     Dates: start: 201607
  11. ALBUMIN HUMAN [Concomitant]
     Active Substance: ALBUMIN HUMAN
     Indication: Supplementation therapy
     Dosage: UNK
     Dates: start: 2016
  12. SULFAMETHOXAZOLE TABLETS [Concomitant]
     Indication: Pneumocystis jirovecii pneumonia
     Dosage: UNK
     Dates: start: 201701
  13. VANCOMYCIN HYDROCHLORIDE [Concomitant]
     Active Substance: VANCOMYCIN HYDROCHLORIDE
     Indication: Anti-infective therapy
     Dosage: UNK
     Route: 042
     Dates: start: 201910
  14. MEROPENEM [Concomitant]
     Active Substance: MEROPENEM
     Indication: Anti-infective therapy
     Dosage: UNK
     Route: 042
     Dates: start: 201910
  15. IVABRADINE [Concomitant]
     Active Substance: IVABRADINE
     Indication: Cardiac failure
     Dosage: 5 MG, BID
     Dates: start: 201910
  16. SACUBITRIL\VALSARTAN [Concomitant]
     Active Substance: SACUBITRIL\VALSARTAN
     Indication: Cardiac failure
     Dosage: 25 MG, BID
     Dates: start: 201910
  17. BOSENTAN [Concomitant]
     Active Substance: BOSENTAN
     Indication: Pulmonary arterial hypertension
     Dosage: 62.5 MG, BID
     Dates: start: 201910
  18. METOPROLOL SUCCINATE SUSTAINED RELEASE TABLETS [Concomitant]
     Indication: Pulmonary arterial hypertension
     Dosage: UNK

REACTIONS (7)
  - Renal cyst [Unknown]
  - Kidney enlargement [Unknown]
  - Hepatomegaly [Unknown]
  - Mitochondrial cytopathy [Unknown]
  - Alopecia [Unknown]
  - Amnesia [Unknown]
  - Therapy cessation [Unknown]

NARRATIVE: CASE EVENT DATE: 20180101
